FAERS Safety Report 5288176-8 (Version None)
Quarter: 2007Q1

REPORT INFORMATION
  Report Type: 
  Country: None (occurrence: None)
  Receive Date: 20070116
  Receipt Date: 20061019
  Transmission Date: 20070707
  Serious: No
  Sender: FDA-Public Use
  Company Number: 2006SP003754

PATIENT
  Age: 59 Year
  Sex: Male

DRUGS (5)
  1. LUNESTA [Suspect]
     Indication: INSOMNIA
     Dosage: SEE IMAGE
     Route: 048
     Dates: start: 20050829, end: 20060129
  2. LUNESTA [Suspect]
     Indication: INSOMNIA
     Dosage: SEE IMAGE
     Route: 048
     Dates: start: 20060526
  3. VALSARTAN [Concomitant]
  4. NAPROXEN [Concomitant]
  5. LEXAPRO [Concomitant]

REACTIONS (1)
  - DRUG EFFECT DECREASED [None]
